FAERS Safety Report 5972719-2 (Version None)
Quarter: 2008Q4

REPORT INFORMATION
  Report Type: 
  Country: None (occurrence: None)
  Receive Date: 20081125
  Receipt Date: 20081111
  Transmission Date: 20090506
  Serious: Yes (Hospitalization)
  Sender: FDA-Public Use
  Company Number: GXKR2008CA08959

PATIENT
  Age: 61 Year
  Sex: Male
  Weight: 104 kg

DRUGS (30)
  1. NITROGLYCERIN [Suspect]
     Indication: BLOOD PRESSURE INCREASED
     Dosage: INTRAVENOUS
     Route: 042
     Dates: start: 20080827, end: 20080827
  2. PROTAMINE SULFATE [Suspect]
     Indication: HEPARIN NEUTRALISATION THERAPY
     Dosage: 500 MG, INTRAVENOUS
     Route: 042
     Dates: start: 20080827, end: 20080827
  3. TRANEXAMIC ACID INJ BP (NGX) (TRANEXAMIC ACID) UNKNOWN [Suspect]
     Indication: HAEMORRHAGE PROPHYLAXIS
     Dosage: 8 G, INTRAVENOUS
     Route: 042
     Dates: start: 20080827, end: 20080827
  4. MAGNESIUM SULFATE [Suspect]
     Indication: ELECTROLYTE SUBSTITUTION THERAPY
     Dosage: 5 G, INTRAVENOUS
     Route: 042
     Dates: start: 20080827, end: 20080827
  5. HEPARIN [Suspect]
     Dosage: 45000 IU/DAY, INTRAVENOUS
  6. PROTAMINE SULFATE [Suspect]
  7. PROTAMINE SULFATE [Suspect]
  8. TRANEXAMIC ACID INJ BP (NGX) (TRANEXAMIC ACID) UNKNOWN [Suspect]
  9. MAGNESIUM SULFATE [Suspect]
  10. FENTANYL-100 [Concomitant]
  11. MANNITOL [Concomitant]
  12. DIAZEPAM [Concomitant]
  13. PANCURONIUM (PANCUONIUM) [Concomitant]
  14. MIDAZOLAM HCL [Concomitant]
  15. ROCURONIUM BROMIDE [Concomitant]
  16. EPINEPHRINE [Concomitant]
  17. MORPHINE [Concomitant]
  18. PROPOFOL [Concomitant]
  19. SEVOFLURANE [Concomitant]
  20. SODIUM BICARBONATE IN PLASTIC CONTAINER [Concomitant]
  21. CEFAZOLIN [Concomitant]
  22. GLYCOPYRROLATE [Concomitant]
  23. INSULIN (INSULIN) [Concomitant]
  24. LIDOCAINE [Concomitant]
  25. METOPROLOL TARTRATE [Concomitant]
  26. METHYLPREDNISOLONE 16MG TAB [Concomitant]
  27. VOLUVEN (HETASTARCH) [Concomitant]
  28. NEOSYNEPHREX (EPINEPHRINE) [Concomitant]
  29. EPHEDRINE (EPHIDRINE) [Concomitant]
  30. BACITRACIN [Concomitant]

REACTIONS (1)
  - GRAND MAL CONVULSION [None]
